FAERS Safety Report 10005463 (Version 4)
Quarter: 2014Q4

REPORT INFORMATION
  Report Type: Report from Study
  Country: CZ (occurrence: CZ)
  Receive Date: 20140313
  Receipt Date: 20141125
  Transmission Date: 20150528
  Serious: Yes (Other)
  Sender: FDA-Public Use
  Company Number: CZ-BIOGENIDEC-2013BI092770

PATIENT
  Age: 41 Year
  Sex: Female

DRUGS (2)
  1. VIGANTOL [Concomitant]
  2. AVONEX [Suspect]
     Active Substance: INTERFERON BETA-1A
     Indication: RELAPSING-REMITTING MULTIPLE SCLEROSIS
     Route: 030
     Dates: start: 20110102, end: 20130506

REACTIONS (2)
  - Pregnancy [Recovered/Resolved]
  - Arrested labour [Recovered/Resolved]

NARRATIVE: CASE EVENT DATE: 20130329
